FAERS Safety Report 21435033 (Version 1)
Quarter: 2022Q4

REPORT INFORMATION
  Report Type: Spontaneous
  Country: GB (occurrence: GB)
  Receive Date: 20221010
  Receipt Date: 20221010
  Transmission Date: 20230112
  Serious: Yes (Hospitalization)
  Sender: FDA-Public Use
  Company Number: GB-MYLANLABS-2022M1110913

PATIENT

DRUGS (1)
  1. CLOZARIL [Suspect]
     Active Substance: CLOZAPINE
     Indication: Product used for unknown indication
     Dosage: 325 MILLIGRAM, PM (AT NIGHT)
     Route: 065
     Dates: start: 20220929

REACTIONS (1)
  - Prescription drug used without a prescription [Recovering/Resolving]

NARRATIVE: CASE EVENT DATE: 20220929
